FAERS Safety Report 9322849 (Version 1)
Quarter: 2013Q2

REPORT INFORMATION
  Report Type: Spontaneous
  Country: ID (occurrence: ID)
  Receive Date: 20130602
  Receipt Date: 20130602
  Transmission Date: 20140414
  Serious: Yes (Other)
  Sender: FDA-Public Use
  Company Number: PHHY2013ID055121

PATIENT
  Sex: Male

DRUGS (3)
  1. CLOZARIL [Suspect]
     Dosage: 2 TABLETS
     Dates: start: 1999
  2. CLOZARIL [Suspect]
     Dosage: HALF TABLET
     Dates: start: 2001, end: 2006
  3. CLOZARIL [Suspect]
     Dosage: UNK UKN, UNK

REACTIONS (5)
  - Paralysis [Unknown]
  - Mental impairment [Unknown]
  - Insomnia [Unknown]
  - Hallucination, auditory [Unknown]
  - Feeling abnormal [Unknown]
